FAERS Safety Report 10693200 (Version 2)
Quarter: 2015Q1

REPORT INFORMATION
  Report Type: Spontaneous
  Country: US (occurrence: US)
  Receive Date: 20150106
  Receipt Date: 20150106
  Transmission Date: 20150720
  Serious: Yes (Hospitalization, Other)
  Sender: FDA-Public Use
  Company Number: US-SA-2014SA166721

PATIENT
  Age: 71 Year
  Sex: Male
  Weight: 109 kg

DRUGS (22)
  1. PROTONIX [Concomitant]
     Active Substance: PANTOPRAZOLE SODIUM
  2. MAGNESIUM OXIDE. [Concomitant]
     Active Substance: MAGNESIUM OXIDE
  3. ASPIRIN EC [Concomitant]
     Active Substance: ASPIRIN
     Dosage: STRENGTH: 81 MG
  4. AMIODARONE [Concomitant]
     Active Substance: AMIODARONE
  5. ABILIFY [Concomitant]
     Active Substance: ARIPIPRAZOLE
  6. HYDROCODONE [Concomitant]
     Active Substance: HYDROCODONE
     Indication: ARTHRALGIA
  7. PLAVIX [Suspect]
     Active Substance: CLOPIDOGREL BISULFATE
     Indication: THROMBOSIS PROPHYLAXIS
     Route: 048
     Dates: start: 2009, end: 20141102
  8. VYTORIN [Concomitant]
     Active Substance: EZETIMIBE\SIMVASTATIN
  9. ATIVAN [Concomitant]
     Active Substance: LORAZEPAM
  10. ISOSORBIDE MN [Concomitant]
     Active Substance: ISOSORBIDE MONONITRATE
  11. TIKOSYN [Concomitant]
     Active Substance: DOFETILIDE
     Indication: ATRIAL FIBRILLATION
     Dates: start: 2011
  12. ISOSORBIDE [Concomitant]
     Active Substance: ISOSORBIDE
  13. COUMADIN [Concomitant]
     Active Substance: WARFARIN SODIUM
     Dosage: STRENGTH: 5 MG
  14. CARVEDILOL. [Concomitant]
     Active Substance: CARVEDILOL
  15. COUMADIN [Concomitant]
     Active Substance: WARFARIN SODIUM
     Dates: end: 2009
  16. VENLAFAXINE [Concomitant]
     Active Substance: VENLAFAXINE HYDROCHLORIDE
  17. AMLODIPINE/BENAZEPRIL [Concomitant]
  18. VITAMIN C [Concomitant]
     Active Substance: ASCORBIC ACID
  19. METFORMIN [Concomitant]
     Active Substance: METFORMIN HYDROCHLORIDE
  20. LASIX [Concomitant]
     Active Substance: FUROSEMIDE
  21. LIALDA [Concomitant]
     Active Substance: MESALAMINE
     Indication: COLITIS
  22. HYDROCODONE [Concomitant]
     Active Substance: HYDROCODONE
     Indication: BACK PAIN

REACTIONS (3)
  - Knee arthroplasty [Unknown]
  - Cerebrovascular accident [Recovered/Resolved with Sequelae]
  - Pain [Unknown]

NARRATIVE: CASE EVENT DATE: 2011
